FAERS Safety Report 11435877 (Version 1)
Quarter: 2015Q3

REPORT INFORMATION
  Report Type: Spontaneous
  Country: US (occurrence: US)
  Receive Date: 20150821
  Receipt Date: 20150821
  Transmission Date: 20151125
  Serious: No
  Sender: FDA-Public Use
  Company Number: US-ELI_LILLY_AND_COMPANY-US201401007600

PATIENT
  Age: 59 Year
  Sex: Male

DRUGS (4)
  1. KEPPRA [Concomitant]
     Active Substance: LEVETIRACETAM
  2. DILANTIN [Concomitant]
     Active Substance: PHENYTOIN
  3. CIALIS [Suspect]
     Active Substance: TADALAFIL
     Indication: REHABILITATION THERAPY
     Dosage: 1 DF, SINGLE
     Route: 065
     Dates: start: 20140115, end: 20140115
  4. CRESTOR [Concomitant]
     Active Substance: ROSUVASTATIN CALCIUM

REACTIONS (3)
  - Wrong technique in product usage process [Recovered/Resolved]
  - Off label use [Recovered/Resolved]
  - Tinnitus [Not Recovered/Not Resolved]

NARRATIVE: CASE EVENT DATE: 20140115
